FAERS Safety Report 14732562 (Version 1)
Quarter: 2018Q2

REPORT INFORMATION
  Report Type: Spontaneous
  Country: AU (occurrence: AU)
  Receive Date: 20180409
  Receipt Date: 20180409
  Transmission Date: 20180711
  Serious: Yes (Hospitalization)
  Sender: FDA-Public Use
  Company Number: AU-IGSA-SR10005901

PATIENT
  Age: 75 Year
  Sex: Male
  Weight: 100 kg

DRUGS (1)
  1. FLEBOGAMMA DIF [Suspect]
     Active Substance: HUMAN IMMUNOGLOBULIN G
     Indication: CHRONIC INFLAMMATORY DEMYELINATING POLYRADICULONEUROPATHY
     Dosage: 50 G, SINGLE
     Route: 042
     Dates: start: 20171114, end: 20171114

REACTIONS (5)
  - Malaise [Recovered/Resolved]
  - Lethargy [Recovered/Resolved]
  - Arthralgia [Recovered/Resolved]
  - Rash erythematous [Recovered/Resolved]
  - Exfoliative rash [Recovered/Resolved]

NARRATIVE: CASE EVENT DATE: 20171201
